FAERS Safety Report 5534318-6 (Version None)
Quarter: 2007Q4

REPORT INFORMATION
  Report Type: 
  Country: None (occurrence: None)
  Receive Date: 20071130
  Receipt Date: 20071114
  Transmission Date: 20080405
  Serious: Yes (Hospitalization)
  Sender: FDA-Public Use
  Company Number: 100#08#2007-04823

PATIENT
  Age: 31 Year
  Sex: Female

DRUGS (4)
  1. PHENYTOIN [Suspect]
     Indication: EPILEPSY
  2. VALPROATE SODIUM [Suspect]
     Indication: EPILEPSY
  3. PREGABALIN (PREGABALIN) (PREGABALIN) [Suspect]
     Indication: EPILEPSY
  4. CLOBAZAM (CLOBAZAM) (CLOBAZAM) [Suspect]
     Indication: EPILEPSY

REACTIONS (4)
  - CEREBELLAR ATROPHY [None]
  - CONVULSION [None]
  - HEAD INJURY [None]
  - SKULL MALFORMATION [None]
